FAERS Safety Report 5096045-1 (Version None)
Quarter: 2006Q3

REPORT INFORMATION
  Report Type: 
  Country: None (occurrence: None)
  Receive Date: 20060830
  Receipt Date: 20060817
  Transmission Date: 20061208
  Serious: Yes (Hospitalization, Other)
  Sender: FDA-Public Use
  Company Number: 2006100701

PATIENT
  Sex: Female
  Weight: 73.4827 kg

DRUGS (4)
  1. NEURONTIN [Suspect]
     Indication: DEPRESSION
     Dosage: 1800 MG (1 D)
  2. KLONOPIN [Suspect]
     Indication: DRUG USE FOR UNKNOWN INDICATION
  3. LAMICTAL [Suspect]
     Indication: BIPOLAR DISORDER
  4. LITHIUM CARBONATE [Concomitant]

REACTIONS (13)
  - AMNESIA [None]
  - BALANCE DISORDER [None]
  - BIPOLAR DISORDER [None]
  - CRYING [None]
  - DEPRESSION [None]
  - DRUG WITHDRAWAL SYNDROME [None]
  - FALL [None]
  - PANIC ATTACK [None]
  - READING DISORDER [None]
  - SOMNOLENCE [None]
  - SPEECH DISORDER [None]
  - TREMOR [None]
  - VIRAL INFECTION [None]
